FAERS Safety Report 18021407 (Version 1)
Quarter: 2020Q3

REPORT INFORMATION
  Report Type: Spontaneous
  Country: DE (occurrence: DE)
  Receive Date: 20200714
  Receipt Date: 20200714
  Transmission Date: 20201103
  Serious: Yes (Other)
  Sender: FDA-Public Use
  Company Number: DE-MYLANLABS-2020M1063299

PATIENT
  Age: 86 Year
  Sex: Male

DRUGS (3)
  1. PREDNISOLON                        /00016201/ [Suspect]
     Active Substance: PREDNISOLONE
     Indication: RHEUMATIC DISORDER
     Dosage: 5 MILLIGRAM, QD
     Route: 048
  2. AMLODIPIN                          /00972401/ [Concomitant]
     Active Substance: AMLODIPINE BESYLATE
     Dosage: FOR AT LEAST 20 YEARS
  3. METHOTREXATE. [Suspect]
     Active Substance: METHOTREXATE
     Indication: RHEUMATIC DISORDER
     Dosage: 10 MILLIGRAM, QW

REACTIONS (5)
  - Blood pressure increased [Unknown]
  - Bronchitis [Unknown]
  - Heart rate irregular [Unknown]
  - Arrhythmia [Unknown]
  - Phlebitis [Unknown]
